FAERS Safety Report 17472585 (Version 1)
Quarter: 2020Q1

REPORT INFORMATION
  Report Type: Spontaneous
  Country: US (occurrence: US)
  Receive Date: 20200217
  Receipt Date: 20200217
  Transmission Date: 20200409
  Serious: Yes (Hospitalization)
  Sender: FDA-Public Use
  Company Number: None

PATIENT
  Age: 9 Year
  Sex: Male

DRUGS (1)
  1. ORKAMBI [Suspect]
     Active Substance: IVACAFTOR\LUMACAFTOR
     Indication: CYSTIC FIBROSIS
     Dosage: ?          OTHER DOSE:2 TABLETS;?
     Route: 048
     Dates: start: 201805

REACTIONS (3)
  - Pseudomonas infection [None]
  - Bronchoscopy abnormal [None]
  - Stenotrophomonas infection [None]

NARRATIVE: CASE EVENT DATE: 20200109
